FAERS Safety Report 19172696 (Version 1)
Quarter: 2021Q2

REPORT INFORMATION
  Report Type: Spontaneous
  Country: US (occurrence: US)
  Receive Date: 20210422
  Receipt Date: 20210422
  Transmission Date: 20210717
  Serious: Yes (Hospitalization)
  Sender: FDA-Public Use
  Company Number: None

PATIENT
  Age: 49 Year
  Sex: Male
  Weight: 49.05 kg

DRUGS (1)
  1. ELIQUIS [Suspect]
     Active Substance: APIXABAN
     Indication: VENOUS THROMBOSIS
     Route: 048
     Dates: start: 20200520, end: 20210215

REACTIONS (3)
  - Venous thrombosis [None]
  - Condition aggravated [None]
  - COVID-19 [None]

NARRATIVE: CASE EVENT DATE: 20210215
